FAERS Safety Report 5092488-0 (Version None)
Quarter: 2006Q3

REPORT INFORMATION
  Report Type: 
  Country: None (occurrence: None)
  Receive Date: 20060828
  Receipt Date: 20060811
  Transmission Date: 20061208
  Serious: Yes (Other)
  Sender: FDA-Public Use
  Company Number: 2006102040

PATIENT
  Sex: Male

DRUGS (2)
  1. NEURONTIN [Suspect]
     Indication: BIPOLAR DISORDER
     Dates: start: 19970101, end: 20020101
  2. NEURONTIN [Suspect]
     Indication: POST-TRAUMATIC STRESS DISORDER
     Dates: start: 19970101, end: 20020101

REACTIONS (28)
  - AGGRESSION [None]
  - AMNESIA [None]
  - ANXIETY [None]
  - BIPOLAR DISORDER [None]
  - CONDITION AGGRAVATED [None]
  - CRYING [None]
  - DELUSION [None]
  - DEPERSONALISATION [None]
  - DEPRESSION [None]
  - DRUG HYPERSENSITIVITY [None]
  - FLASHBACK [None]
  - HALLUCINATION [None]
  - INTENTIONAL SELF-INJURY [None]
  - LEGAL PROBLEM [None]
  - LIBIDO DISORDER [None]
  - LOSS OF CONSCIOUSNESS [None]
  - MANIA [None]
  - MOOD SWINGS [None]
  - NIGHTMARE [None]
  - PARANOIA [None]
  - PSYCHIATRIC SYMPTOM [None]
  - RENAL DISORDER [None]
  - SELF ESTEEM DECREASED [None]
  - SOCIAL AVOIDANT BEHAVIOUR [None]
  - SUICIDAL IDEATION [None]
  - THERAPY NON-RESPONDER [None]
  - THINKING ABNORMAL [None]
  - WEIGHT INCREASED [None]
